FAERS Safety Report 5800560-X (Version None)
Quarter: 2008Q3

REPORT INFORMATION
  Report Type: 
  Country: None (occurrence: None)
  Receive Date: 20080703
  Receipt Date: 20080625
  Transmission Date: 20090109
  Serious: Yes (Other)
  Sender: FDA-Public Use
  Company Number: US-PFIZER INC-2008054145

PATIENT
  Sex: Male
  Weight: 84.4 kg

DRUGS (6)
  1. ZOLOFT [Suspect]
     Indication: DEPRESSION
  2. SERTRALINE [Suspect]
     Indication: DEPRESSION
  3. DIOVAN [Concomitant]
  4. TOPROL-XL [Concomitant]
  5. FOSAMAX [Concomitant]
  6. VITAMINS [Concomitant]

REACTIONS (6)
  - EDENTULOUS [None]
  - HEADACHE [None]
  - NAUSEA [None]
  - STRESS [None]
  - VERTIGO [None]
  - WEIGHT DECREASED [None]
